FAERS Safety Report 25240835 (Version 1)
Quarter: 2025Q2

REPORT INFORMATION
  Report Type: Report from Study
  Country: IT (occurrence: IT)
  Receive Date: 20250425
  Receipt Date: 20250425
  Transmission Date: 20250716
  Serious: Yes (Death, Hospitalization)
  Sender: MYLAN
  Company Number: IT-ROCHE-10000214258

PATIENT
  Age: 29 Year
  Sex: Male

DRUGS (84)
  1. PREDNISONE [Suspect]
     Active Substance: PREDNISONE
     Indication: Diffuse large B-cell lymphoma
  2. PREDNISONE [Suspect]
     Active Substance: PREDNISONE
     Route: 065
  3. PREDNISONE [Suspect]
     Active Substance: PREDNISONE
     Route: 065
  4. PREDNISONE [Suspect]
     Active Substance: PREDNISONE
  5. PREDNISONE [Suspect]
     Active Substance: PREDNISONE
     Indication: Diffuse large B-cell lymphoma
     Dosage: 100 MILLIGRAM, Q21D
     Dates: start: 20250130
  6. PREDNISONE [Suspect]
     Active Substance: PREDNISONE
     Dosage: 100 MILLIGRAM, Q21D
     Route: 048
     Dates: start: 20250130
  7. PREDNISONE [Suspect]
     Active Substance: PREDNISONE
     Dosage: 100 MILLIGRAM, Q21D
     Route: 048
     Dates: start: 20250130
  8. PREDNISONE [Suspect]
     Active Substance: PREDNISONE
     Dosage: 100 MILLIGRAM, Q21D
     Dates: start: 20250130
  9. POLATUZUMAB VEDOTIN [Suspect]
     Active Substance: POLATUZUMAB VEDOTIN
     Indication: Diffuse large B-cell lymphoma
  10. POLATUZUMAB VEDOTIN [Suspect]
     Active Substance: POLATUZUMAB VEDOTIN
  11. POLATUZUMAB VEDOTIN [Suspect]
     Active Substance: POLATUZUMAB VEDOTIN
     Route: 065
  12. POLATUZUMAB VEDOTIN [Suspect]
     Active Substance: POLATUZUMAB VEDOTIN
     Route: 065
  13. POLATUZUMAB VEDOTIN [Suspect]
     Active Substance: POLATUZUMAB VEDOTIN
     Dosage: 126 MILLIGRAM, Q21D
     Dates: start: 20241230
  14. POLATUZUMAB VEDOTIN [Suspect]
     Active Substance: POLATUZUMAB VEDOTIN
     Dosage: 126 MILLIGRAM, Q21D
     Dates: start: 20241230
  15. POLATUZUMAB VEDOTIN [Suspect]
     Active Substance: POLATUZUMAB VEDOTIN
     Dosage: 126 MILLIGRAM, Q21D
     Route: 042
     Dates: start: 20241230
  16. POLATUZUMAB VEDOTIN [Suspect]
     Active Substance: POLATUZUMAB VEDOTIN
     Dosage: 126 MILLIGRAM, Q21D
     Route: 042
     Dates: start: 20241230
  17. MABTHERA [Suspect]
     Active Substance: RITUXIMAB
     Indication: Diffuse large B-cell lymphoma
  18. MABTHERA [Suspect]
     Active Substance: RITUXIMAB
  19. MABTHERA [Suspect]
     Active Substance: RITUXIMAB
     Route: 065
  20. MABTHERA [Suspect]
     Active Substance: RITUXIMAB
     Route: 065
  21. MABTHERA [Suspect]
     Active Substance: RITUXIMAB
     Dosage: 686.25 MILLIGRAM, Q21D
     Dates: start: 20241231
  22. MABTHERA [Suspect]
     Active Substance: RITUXIMAB
     Dosage: 686.25 MILLIGRAM, Q21D
     Dates: start: 20241231
  23. MABTHERA [Suspect]
     Active Substance: RITUXIMAB
     Dosage: 686.25 MILLIGRAM, Q21D
     Route: 042
     Dates: start: 20241231
  24. MABTHERA [Suspect]
     Active Substance: RITUXIMAB
     Dosage: 686.25 MILLIGRAM, Q21D
     Route: 042
     Dates: start: 20241231
  25. CYCLOPHOSPHAMIDE [Suspect]
     Active Substance: CYCLOPHOSPHAMIDE
     Indication: Diffuse large B-cell lymphoma
  26. CYCLOPHOSPHAMIDE [Suspect]
     Active Substance: CYCLOPHOSPHAMIDE
  27. CYCLOPHOSPHAMIDE [Suspect]
     Active Substance: CYCLOPHOSPHAMIDE
     Route: 065
  28. CYCLOPHOSPHAMIDE [Suspect]
     Active Substance: CYCLOPHOSPHAMIDE
     Route: 065
  29. CYCLOPHOSPHAMIDE [Suspect]
     Active Substance: CYCLOPHOSPHAMIDE
     Dosage: 1372.5 MILLIGRAM, Q21D
     Dates: start: 20250130
  30. CYCLOPHOSPHAMIDE [Suspect]
     Active Substance: CYCLOPHOSPHAMIDE
     Dosage: 1372.5 MILLIGRAM, Q21D
     Dates: start: 20250130
  31. CYCLOPHOSPHAMIDE [Suspect]
     Active Substance: CYCLOPHOSPHAMIDE
     Dosage: 1372.5 MILLIGRAM, Q21D
     Route: 042
     Dates: start: 20250130
  32. CYCLOPHOSPHAMIDE [Suspect]
     Active Substance: CYCLOPHOSPHAMIDE
     Dosage: 1372.5 MILLIGRAM, Q21D
     Route: 042
     Dates: start: 20250130
  33. DOXORUBICIN [Suspect]
     Active Substance: DOXORUBICIN
     Indication: Diffuse large B-cell lymphoma
  34. DOXORUBICIN [Suspect]
     Active Substance: DOXORUBICIN
  35. DOXORUBICIN [Suspect]
     Active Substance: DOXORUBICIN
     Route: 065
  36. DOXORUBICIN [Suspect]
     Active Substance: DOXORUBICIN
     Route: 065
  37. DOXORUBICIN [Suspect]
     Active Substance: DOXORUBICIN
     Dosage: 91.5 MILLIGRAM, Q21D
     Dates: start: 20241230
  38. DOXORUBICIN [Suspect]
     Active Substance: DOXORUBICIN
     Dosage: 91.5 MILLIGRAM, Q21D
     Dates: start: 20241230
  39. DOXORUBICIN [Suspect]
     Active Substance: DOXORUBICIN
     Dosage: 91.5 MILLIGRAM, Q21D
     Route: 042
     Dates: start: 20241230
  40. DOXORUBICIN [Suspect]
     Active Substance: DOXORUBICIN
     Dosage: 91.5 MILLIGRAM, Q21D
     Route: 042
     Dates: start: 20241230
  41. PANTOPRAZOLE [Concomitant]
     Active Substance: PANTOPRAZOLE
     Dosage: 40 MILLIGRAM, QD
     Dates: start: 20241112
  42. PANTOPRAZOLE [Concomitant]
     Active Substance: PANTOPRAZOLE
     Dosage: 40 MILLIGRAM, QD
     Route: 048
     Dates: start: 20241112
  43. PANTOPRAZOLE [Concomitant]
     Active Substance: PANTOPRAZOLE
     Dosage: 40 MILLIGRAM, QD
     Route: 048
     Dates: start: 20241112
  44. PANTOPRAZOLE [Concomitant]
     Active Substance: PANTOPRAZOLE
     Dosage: 40 MILLIGRAM, QD
     Dates: start: 20241112
  45. NYSTATIN [Concomitant]
     Active Substance: NYSTATIN
     Dosage: 5 MILLILITER, QD (DAILY DOSE 15 ML)
     Dates: start: 20241112
  46. NYSTATIN [Concomitant]
     Active Substance: NYSTATIN
     Dosage: 5 MILLILITER, QD (DAILY DOSE 15 ML)
     Route: 048
     Dates: start: 20241112
  47. NYSTATIN [Concomitant]
     Active Substance: NYSTATIN
     Dosage: 5 MILLILITER, QD (DAILY DOSE 15 ML)
     Route: 048
     Dates: start: 20241112
  48. NYSTATIN [Concomitant]
     Active Substance: NYSTATIN
     Dosage: 5 MILLILITER, QD (DAILY DOSE 15 ML)
     Dates: start: 20241112
  49. ENOXAPARIN [Concomitant]
     Active Substance: ENOXAPARIN
     Dosage: 4000 INTERNATIONAL UNIT, QD
     Dates: start: 20241112
  50. ENOXAPARIN [Concomitant]
     Active Substance: ENOXAPARIN
     Dosage: 4000 INTERNATIONAL UNIT, QD
     Route: 058
     Dates: start: 20241112
  51. ENOXAPARIN [Concomitant]
     Active Substance: ENOXAPARIN
     Dosage: 4000 INTERNATIONAL UNIT, QD
     Route: 058
     Dates: start: 20241112
  52. ENOXAPARIN [Concomitant]
     Active Substance: ENOXAPARIN
     Dosage: 4000 INTERNATIONAL UNIT, QD
     Dates: start: 20241112
  53. Contrimoxazole [Concomitant]
  54. Contrimoxazole [Concomitant]
     Route: 048
  55. Contrimoxazole [Concomitant]
     Route: 048
  56. Contrimoxazole [Concomitant]
  57. ACYCLOVIR [Concomitant]
     Active Substance: ACYCLOVIR
     Dosage: 800 MILLIGRAM, QD (DAILY DOSE 800 MG)
     Dates: start: 20241112
  58. ACYCLOVIR [Concomitant]
     Active Substance: ACYCLOVIR
     Dosage: 800 MILLIGRAM, QD (DAILY DOSE 800 MG)
     Route: 048
     Dates: start: 20241112
  59. ACYCLOVIR [Concomitant]
     Active Substance: ACYCLOVIR
     Dosage: 800 MILLIGRAM, QD (DAILY DOSE 800 MG)
     Route: 048
     Dates: start: 20241112
  60. ACYCLOVIR [Concomitant]
     Active Substance: ACYCLOVIR
     Dosage: 800 MILLIGRAM, QD (DAILY DOSE 800 MG)
     Dates: start: 20241112
  61. POTASSIUM CHLORIDE [Concomitant]
     Active Substance: POTASSIUM CHLORIDE
     Dosage: 600 MILLIGRAM, QD
     Dates: start: 20241112
  62. POTASSIUM CHLORIDE [Concomitant]
     Active Substance: POTASSIUM CHLORIDE
     Dosage: 600 MILLIGRAM, QD
     Route: 048
     Dates: start: 20241112
  63. POTASSIUM CHLORIDE [Concomitant]
     Active Substance: POTASSIUM CHLORIDE
     Dosage: 600 MILLIGRAM, QD
     Route: 048
     Dates: start: 20241112
  64. POTASSIUM CHLORIDE [Concomitant]
     Active Substance: POTASSIUM CHLORIDE
     Dosage: 600 MILLIGRAM, QD
     Dates: start: 20241112
  65. ACETYLCYSTEINE [Concomitant]
     Active Substance: ACETYLCYSTEINE
     Dosage: 600 MILLIGRAM, QD
     Dates: start: 20241112
  66. ACETYLCYSTEINE [Concomitant]
     Active Substance: ACETYLCYSTEINE
     Dosage: 600 MILLIGRAM, QD
     Route: 048
     Dates: start: 20241112
  67. ACETYLCYSTEINE [Concomitant]
     Active Substance: ACETYLCYSTEINE
     Dosage: 600 MILLIGRAM, QD
     Route: 048
     Dates: start: 20241112
  68. ACETYLCYSTEINE [Concomitant]
     Active Substance: ACETYLCYSTEINE
     Dosage: 600 MILLIGRAM, QD
     Dates: start: 20241112
  69. ONDANSETRON [Concomitant]
     Active Substance: ONDANSETRON
  70. ONDANSETRON [Concomitant]
     Active Substance: ONDANSETRON
     Route: 048
  71. ONDANSETRON [Concomitant]
     Active Substance: ONDANSETRON
     Route: 048
  72. ONDANSETRON [Concomitant]
     Active Substance: ONDANSETRON
  73. POLYETHYLENE GLYCOLS [Concomitant]
     Active Substance: POLYETHYLENE GLYCOLS
  74. POLYETHYLENE GLYCOLS [Concomitant]
     Active Substance: POLYETHYLENE GLYCOLS
     Route: 048
  75. POLYETHYLENE GLYCOLS [Concomitant]
     Active Substance: POLYETHYLENE GLYCOLS
     Route: 048
  76. POLYETHYLENE GLYCOLS [Concomitant]
     Active Substance: POLYETHYLENE GLYCOLS
  77. FILGRASTIM [Concomitant]
     Active Substance: FILGRASTIM
     Dosage: UNK UNK, QD (30 MU)
     Dates: start: 20250130
  78. FILGRASTIM [Concomitant]
     Active Substance: FILGRASTIM
     Dosage: UNK UNK, QD (30 MU)
     Route: 058
     Dates: start: 20250130
  79. FILGRASTIM [Concomitant]
     Active Substance: FILGRASTIM
     Dosage: UNK UNK, QD (30 MU)
     Route: 058
     Dates: start: 20250130
  80. FILGRASTIM [Concomitant]
     Active Substance: FILGRASTIM
     Dosage: UNK UNK, QD (30 MU)
     Dates: start: 20250130
  81. PREDNISONE [Concomitant]
     Active Substance: PREDNISONE
     Dosage: 12.5 GRAM, QD
  82. PREDNISONE [Concomitant]
     Active Substance: PREDNISONE
     Dosage: 12.5 GRAM, QD
     Route: 048
  83. PREDNISONE [Concomitant]
     Active Substance: PREDNISONE
     Dosage: 12.5 GRAM, QD
     Route: 048
  84. PREDNISONE [Concomitant]
     Active Substance: PREDNISONE
     Dosage: 12.5 GRAM, QD

REACTIONS (1)
  - Neutropenia [Fatal]

NARRATIVE: CASE EVENT DATE: 20250131
